FAERS Safety Report 7874342-1 (Version None)
Quarter: 2011Q4

REPORT INFORMATION
  Report Type: 
  Country: None (occurrence: None)
  Receive Date: 20111030
  Receipt Date: 20110519
  Transmission Date: 20120403
  Serious: No
  Sender: FDA-Public Use
  Company Number: US-AMGEN-USASP2011026086

PATIENT
  Sex: Female

DRUGS (2)
  1. PLAQUENIL [Concomitant]
     Dosage: 1 MG, QD
     Dates: start: 20110506
  2. ENBREL [Suspect]
     Indication: RHEUMATOID ARTHRITIS
     Dosage: 50 MG, QWK
     Dates: start: 20110512

REACTIONS (2)
  - INJECTION SITE REACTION [None]
  - INJECTION SITE PAIN [None]
